FAERS Safety Report 16174153 (Version 6)
Quarter: 2019Q3

REPORT INFORMATION
  Report Type: Report from Study
  Country: HK (occurrence: HK)
  Receive Date: 20190409
  Receipt Date: 20190801
  Transmission Date: 20191004
  Serious: No
  Sender: FDA-Public Use
  Company Number: HK-PFIZER INC-2019129808

PATIENT
  Age: 46 Year
  Sex: Female
  Weight: 78 kg

DRUGS (4)
  1. LORLATINIB [Suspect]
     Active Substance: LORLATINIB
     Dosage: 75 MG, 1X/DAY
     Route: 048
     Dates: start: 20181213, end: 20190322
  2. METFORMIN HYDROCHLORIDE. [Concomitant]
     Active Substance: METFORMIN HYDROCHLORIDE
     Indication: DIABETES MELLITUS
     Dosage: 500 MG, 2X/DAY
     Route: 048
     Dates: start: 20190321
  3. ROSUVASTATIN. [Concomitant]
     Active Substance: ROSUVASTATIN
     Indication: HYPERCHOLESTEROLAEMIA
     Dosage: 20 MG, 2X/DAY
     Route: 048
     Dates: start: 20190321
  4. LORLATINIB [Suspect]
     Active Substance: LORLATINIB
     Indication: LUNG NEOPLASM MALIGNANT
     Dosage: 100 MG, UNK
     Dates: start: 20181101, end: 20181129

REACTIONS (1)
  - Proteinuria [Recovered/Resolved with Sequelae]

NARRATIVE: CASE EVENT DATE: 20190325
